FAERS Safety Report 6280722-0 (Version None)
Quarter: 2009Q3

REPORT INFORMATION
  Report Type: 
  Country: None (occurrence: None)
  Receive Date: 20090724
  Receipt Date: 20081204
  Transmission Date: 20100115
  Serious: No
  Sender: FDA-Public Use
  Company Number: A0759820A

PATIENT
  Sex: Male

DRUGS (1)
  1. AVANDIA [Suspect]
     Indication: DRUG USE FOR UNKNOWN INDICATION
     Route: 065

REACTIONS (7)
  - GINGIVAL PAIN [None]
  - GINGIVAL SWELLING [None]
  - OEDEMA MOUTH [None]
  - ORAL PAIN [None]
  - OROPHARYNGEAL PAIN [None]
  - PAIN [None]
  - PHARYNGEAL OEDEMA [None]
